FAERS Safety Report 11786593 (Version 2)
Quarter: 2015Q4

REPORT INFORMATION
  Report Type: Spontaneous
  Country: FR (occurrence: FR)
  Receive Date: 20151130
  Receipt Date: 20151204
  Transmission Date: 20160305
  Serious: Yes (Hospitalization)
  Sender: FDA-Public Use
  Company Number: FR-PFIZER INC-2015405564

PATIENT
  Age: 42 Year
  Sex: Male

DRUGS (8)
  1. DIAZEPAM. [Suspect]
     Active Substance: DIAZEPAM
     Indication: BIPOLAR I DISORDER
     Dosage: 30 MG, 1X/DAY
     Route: 048
     Dates: start: 20151012, end: 20151028
  2. ZOLOFT [Suspect]
     Active Substance: SERTRALINE HYDROCHLORIDE
     Dosage: UNK
     Dates: end: 20151028
  3. TAHOR [Suspect]
     Active Substance: ATORVASTATIN CALCIUM
     Dosage: UNK
     Dates: end: 20151028
  4. ZOPICLONE [Suspect]
     Active Substance: ZOPICLONE
     Dosage: UNK
     Dates: end: 20151028
  5. KARDEGIC [Concomitant]
     Active Substance: ASPIRIN LYSINE
     Dosage: UNK
  6. TEMERIT [Concomitant]
     Active Substance: NEBIVOLOL
     Dosage: UNK
  7. TEGRETOL [Suspect]
     Active Substance: CARBAMAZEPINE
     Indication: BIPOLAR I DISORDER
     Dosage: 600 MG, 1X/DAY
     Route: 048
     Dates: start: 20151012, end: 20151028
  8. PARACETAMOL [Suspect]
     Active Substance: ACETAMINOPHEN
     Dosage: UNK
     Dates: end: 20151028

REACTIONS (4)
  - Hepatitis [Recovering/Resolving]
  - Neutropenia [Recovered/Resolved]
  - Thrombocytopenia [Recovered/Resolved]
  - Cell death [Recovering/Resolving]

NARRATIVE: CASE EVENT DATE: 20151026
